FAERS Safety Report 9214494 (Version 7)
Quarter: 2013Q3

REPORT INFORMATION
  Report Type: Report from Study
  Country: BR (occurrence: BR)
  Receive Date: 20130405
  Receipt Date: 20130918
  Transmission Date: 20140515
  Serious: Yes (Other)
  Sender: FDA-Public Use
  Company Number: BR-ROCHE-1206724

PATIENT
  Age: 61 Year
  Sex: Male
  Weight: 84 kg

DRUGS (23)
  1. RITUXIMAB [Suspect]
     Indication: B-CELL LYMPHOMA
     Route: 042
     Dates: start: 20120914
  2. RHUPH20/RITUXIMAB [Suspect]
     Indication: B-CELL LYMPHOMA
     Route: 058
     Dates: start: 20121005
  3. RHUPH20/RITUXIMAB [Suspect]
     Dosage: DATE OF LAST DOSE PRIOR TO SAE: 26/OCT/2012
     Route: 058
     Dates: start: 20121026
  4. RHUPH20/RITUXIMAB [Suspect]
     Dosage: DATE OF LAST DOSE PRIOR TO SAE: 07/DEC/2012
     Route: 058
     Dates: start: 20121207
  5. RHUPH20/RITUXIMAB [Suspect]
     Route: 058
     Dates: start: 20130118
  6. RHUPH20/RITUXIMAB [Suspect]
     Route: 058
     Dates: start: 20121114
  7. RHUPH20/RITUXIMAB [Suspect]
     Route: 058
     Dates: start: 20121228
  8. RHUPH20/RITUXIMAB [Suspect]
     Route: 058
     Dates: start: 20130208
  9. RHUPH20/RITUXIMAB [Suspect]
     Route: 058
     Dates: start: 20130412
  10. RHUPH20/RITUXIMAB [Suspect]
     Route: 058
     Dates: start: 20130614
  11. RHUPH20/RITUXIMAB [Suspect]
     Route: 058
     Dates: start: 20130823
  12. DIPIRONE [Concomitant]
     Indication: PAIN
     Dosage: 2 CPS
     Route: 065
     Dates: start: 20121023, end: 20121023
  13. SULFAMETHOXAZOLE/TRIMETHOPRIM [Concomitant]
     Indication: PROPHYLAXIS
     Route: 065
     Dates: start: 201101
  14. OMEPRAZOL [Concomitant]
     Route: 065
     Dates: start: 201101
  15. FLUOXETINE [Concomitant]
     Indication: DEPRESSION
     Route: 065
     Dates: start: 201203
  16. GRANULOKINE [Concomitant]
     Indication: NEUTROPENIA
     Route: 065
     Dates: start: 20121108, end: 20121111
  17. GRANULOKINE [Concomitant]
     Route: 065
     Dates: start: 20130118, end: 20130122
  18. GRANULOKINE [Concomitant]
     Route: 065
     Dates: start: 20130208, end: 20130213
  19. GRANULOKINE [Concomitant]
     Route: 065
     Dates: start: 20130614
  20. FILGRASTIM [Concomitant]
     Indication: NEUTROPENIA
     Route: 065
     Dates: start: 20121108, end: 20121111
  21. LORATADINA [Concomitant]
     Indication: RHINITIS ALLERGIC
     Route: 065
     Dates: start: 20130118, end: 20130124
  22. PARACETAMOL [Concomitant]
     Indication: BACK PAIN
     Route: 065
     Dates: start: 20130121, end: 20130121
  23. NIMESULIDA [Concomitant]
     Indication: BACK PAIN
     Route: 065
     Dates: start: 20130121, end: 20130121

REACTIONS (1)
  - Infusion site erythema [Recovered/Resolved]
